FAERS Safety Report 4927447-9 (Version None)
Quarter: 2006Q1

REPORT INFORMATION
  Report Type: 
  Country: None (occurrence: None)
  Receive Date: 20060213
  Receipt Date: 20060202
  Transmission Date: 20060701
  Serious: Yes (Other)
  Sender: FDA-Public Use
  Company Number: GBWYE360002FEB06

PATIENT
  Age: 14 Month
  Sex: Male

DRUGS (1)
  1. REFACTO [Suspect]
     Indication: HAEMORRHAGE INTRACRANIAL
     Dates: start: 20050101

REACTIONS (1)
  - PLASMIN INHIBITOR INCREASED [None]
